FAERS Safety Report 18896300 (Version 6)
Quarter: 2021Q3

REPORT INFORMATION
  Report Type: Report from Study
  Country: US (occurrence: US)
  Receive Date: 20210216
  Receipt Date: 20210817
  Transmission Date: 20211014
  Serious: Yes (Hospitalization, Other)
  Sender: FDA-Public Use
  Company Number: US-BIOVITRUM-2021US1514

PATIENT
  Sex: Female

DRUGS (1)
  1. KINERET [Suspect]
     Active Substance: ANAKINRA
     Indication: RHEUMATOID ARTHRITIS
     Route: 058
     Dates: start: 20191015

REACTIONS (5)
  - Meningitis [Unknown]
  - Serum ferritin decreased [Unknown]
  - Fungal infection [Unknown]
  - Product dose omission issue [Unknown]
  - COVID-19 [Unknown]
